FAERS Safety Report 6259307-8 (Version None)
Quarter: 2009Q3

REPORT INFORMATION
  Report Type: 
  Country: None (occurrence: None)
  Receive Date: 20090702
  Receipt Date: 20090617
  Transmission Date: 20100115
  Serious: Yes (Other)
  Sender: FDA-Public Use
  Company Number: 2008AL008838

PATIENT
  Sex: Male

DRUGS (4)
  1. DIGOXIN [Suspect]
     Dosage: 0.25MG, PO
     Route: 048
  2. NADOLOL [Concomitant]
  3. FUROSEMIDE [Concomitant]
  4. JANTOVEN [Concomitant]

REACTIONS (1)
  - INJURY [None]
